FAERS Safety Report 20698183 (Version 2)
Quarter: 2022Q2

REPORT INFORMATION
  Report Type: Spontaneous
  Country: BR (occurrence: None)
  Receive Date: 20220412
  Receipt Date: 20220418
  Transmission Date: 20220721
  Serious: Yes (Other)
  Sender: FDA-Public Use
  Company Number: BR-ROCHE-3070929

PATIENT
  Age: 29 Year
  Sex: Female
  Weight: 67 kg

DRUGS (2)
  1. MABTHERA [Suspect]
     Active Substance: RITUXIMAB
     Indication: Rheumatoid arthritis
     Route: 065
     Dates: start: 20190221
  2. MABTHERA [Suspect]
     Active Substance: RITUXIMAB
     Route: 065
     Dates: start: 20190221

REACTIONS (2)
  - Pruritus [Recovered/Resolved]
  - Hyperaemia [Recovered/Resolved]

NARRATIVE: CASE EVENT DATE: 20190221
